FAERS Safety Report 4616230-X (Version None)
Quarter: 2005Q1

REPORT INFORMATION
  Report Type: 
  Country: None (occurrence: None)
  Receive Date: 20050321
  Receipt Date: 20050304
  Transmission Date: 20050727
  Serious: Yes (Hospitalization, Other)
  Sender: FDA-Public Use
  Company Number: 236273K04USA

PATIENT
  Age: 38 Year
  Sex: Male
  Weight: 76.2043 kg

DRUGS (7)
  1. REBIF [Suspect]
     Indication: MULTIPLE SCLEROSIS
     Dosage: 44 MCG, 3 IN 1 WEEKS, SUBCUTANEOUS (SEE IMAGE)
     Route: 058
     Dates: start: 20040922, end: 20050101
  2. TEGRETOL [Concomitant]
  3. NEURONTIN [Concomitant]
  4. DEXTROSTAT (DEXAMFETAMINE SULFATE) [Concomitant]
  5. PERCOCET [Concomitant]
  6. FLOMAX [Concomitant]
  7. DALMANE [Concomitant]

REACTIONS (12)
  - ABNORMAL BEHAVIOUR [None]
  - ASEPTIC NECROSIS BONE [None]
  - CONDITION AGGRAVATED [None]
  - DRUG HYPERSENSITIVITY [None]
  - FATIGUE [None]
  - GRAND MAL CONVULSION [None]
  - HYPOAESTHESIA [None]
  - IMMUNE SYSTEM DISORDER [None]
  - MULTIPLE SCLEROSIS [None]
  - NEURALGIA [None]
  - PAIN [None]
  - PNEUMONIA [None]
